FAERS Safety Report 6983689-2 (Version None)
Quarter: 2010Q3

REPORT INFORMATION
  Report Type: 
  Country: None (occurrence: None)
  Receive Date: 20100914
  Receipt Date: 20051220
  Transmission Date: 20110219
  Serious: Yes (Death)
  Sender: FDA-Public Use
  Company Number: US-WYE-H07163208

PATIENT
  Age: 79 Year
  Sex: Female
  Weight: 58.11 kg

DRUGS (2)
  1. ADVIL LIQUI-GELS [Suspect]
     Indication: MUSCULOSKELETAL DISCOMFORT
     Dosage: UP TO 6 ADVIL PER DAY
     Route: 065
  2. TRACLEER [Suspect]
     Indication: PULMONARY HYPERTENSION
     Route: 048
     Dates: start: 20020801, end: 20021015

REACTIONS (1)
  - RENAL FAILURE ACUTE [None]
